FAERS Safety Report 9350496 (Version 2)
Quarter: 2013Q3

REPORT INFORMATION
  Report Type: Spontaneous
  Country: US (occurrence: US)
  Receive Date: 20130617
  Receipt Date: 20130710
  Transmission Date: 20140515
  Serious: No
  Sender: FDA-Public Use
  Company Number: US-PFIZER INC-2013179947

PATIENT
  Age: 55 Year
  Sex: Female
  Weight: 65.76 kg

DRUGS (10)
  1. LYRICA [Suspect]
     Indication: FIBROMYALGIA
     Dosage: 150 MG, 3X/DAY
     Dates: end: 2013
  2. LYRICA [Suspect]
     Dosage: 75 MG, 3X/DAY
     Dates: start: 2013
  3. ATENOLOL [Concomitant]
     Indication: HYPERTENSION
     Dosage: 25 MG, DAILY
  4. LIBRAX [Concomitant]
     Indication: IRRITABLE BOWEL SYNDROME
     Dosage: UNK, AS NEEDED
  5. KLONOPIN [Concomitant]
     Indication: ANXIETY
     Dosage: 2 MG, 2X/DAY
  6. LOMOTIL [Concomitant]
     Indication: IRRITABLE BOWEL SYNDROME
     Dosage: 2.5/0.025 MG, AS NEEDED
  7. PROZAC [Concomitant]
     Indication: DEPRESSION
     Dosage: 80 MG, DAILY
  8. HYDROCHLOROTHIAZIDE [Concomitant]
     Indication: MENIERE^S DISEASE
     Dosage: 25 MG, UNK
  9. LOVASTATIN [Concomitant]
     Indication: BLOOD CHOLESTEROL INCREASED
     Dosage: 40 MG, DAILY
  10. TRAZODONE [Concomitant]
     Indication: SLEEP DISORDER
     Dosage: 50 MG, DAILY

REACTIONS (3)
  - Intentional drug misuse [Unknown]
  - Bone pain [Unknown]
  - Arthralgia [Unknown]
